FAERS Safety Report 11579516 (Version 2)
Quarter: 2015Q4

REPORT INFORMATION
  Report Type: Spontaneous
  Country: US (occurrence: US)
  Receive Date: 20150930
  Receipt Date: 20151102
  Transmission Date: 20160304
  Serious: Yes (Other)
  Sender: FDA-Public Use
  Company Number: US-ALEXION PHARMACEUTICALS INC-A201503705

PATIENT
  Age: 34 Year
  Sex: Female
  Weight: 52.15 kg

DRUGS (4)
  1. SOLIRIS [Suspect]
     Active Substance: ECULIZUMAB
     Indication: HAEMOLYTIC URAEMIC SYNDROME
     Dosage: 900 MG, QW
     Route: 042
     Dates: start: 20150903, end: 20150910
  2. PREDNISONE. [Concomitant]
     Active Substance: PREDNISONE
     Indication: PRODUCT USED FOR UNKNOWN INDICATION
     Dosage: 15 MG, QD
     Route: 065
  3. SOLIRIS [Suspect]
     Active Substance: ECULIZUMAB
     Dosage: 1200 MG, SINGLE
     Route: 042
     Dates: start: 20150915
  4. SOLU-MEDROL [Concomitant]
     Active Substance: METHYLPREDNISOLONE SODIUM SUCCINATE
     Indication: PRODUCT USED FOR UNKNOWN INDICATION
     Dosage: UNK
     Route: 042

REACTIONS (10)
  - Reticulocyte count abnormal [Recovered/Resolved]
  - Complement factor C4 decreased [Unknown]
  - Respiratory distress [Unknown]
  - Complement factor C3 decreased [Unknown]
  - Fluid overload [Unknown]
  - Proteinuria [Unknown]
  - Acute kidney injury [Not Recovered/Not Resolved]
  - Platelet count decreased [Recovered/Resolved]
  - Inappropriate schedule of drug administration [Unknown]
  - Haemoglobin decreased [Not Recovered/Not Resolved]

NARRATIVE: CASE EVENT DATE: 20150903
